FAERS Safety Report 18123146 (Version 1)
Quarter: 2020Q3

REPORT INFORMATION
  Report Type: Spontaneous
  Country: FR (occurrence: FR)
  Receive Date: 20200807
  Receipt Date: 20200807
  Transmission Date: 20201103
  Serious: Yes (Other)
  Sender: FDA-Public Use
  Company Number: FR-CADILA HEALTHCARE LIMITED-FR-ZYDUS-024702

PATIENT

DRUGS (7)
  1. INSULINE GLARGINE ((BACTERIE/ESCHERICHIA COLI)) [Suspect]
     Active Substance: INSULIN GLARGINE
     Indication: PRODUCT USED FOR UNKNOWN INDICATION
     Dosage: 100 UNITS / ML SOLUTION FOR INJECTION IN A PRE?FILLED PEN
     Route: 058
  2. INEXIUM [Concomitant]
     Active Substance: ESOMEPRAZOLE
     Indication: PRODUCT USED FOR UNKNOWN INDICATION
     Route: 048
  3. DULAGLUTIDE. [Suspect]
     Active Substance: DULAGLUTIDE
     Indication: DIABETES MELLITUS
     Route: 058
  4. DIAMICRON [Suspect]
     Active Substance: GLICLAZIDE
     Indication: DIABETES MELLITUS
     Route: 048
  5. METFORMIN [Suspect]
     Active Substance: METFORMIN HYDROCHLORIDE
     Indication: DIABETES MELLITUS
     Route: 048
  6. CRESTOR [Suspect]
     Active Substance: ROSUVASTATIN CALCIUM
     Indication: PRODUCT USED FOR UNKNOWN INDICATION
     Route: 048
  7. BILASTINE [Suspect]
     Active Substance: BILASTINE
     Indication: PRODUCT USED FOR UNKNOWN INDICATION
     Route: 048

REACTIONS (1)
  - Lichen planus [Recovered/Resolved]

NARRATIVE: CASE EVENT DATE: 201704
